FAERS Safety Report 5656833-7 (Version None)
Quarter: 2008Q1

REPORT INFORMATION
  Report Type: 
  Country: None (occurrence: None)
  Receive Date: 20080310
  Receipt Date: 20080303
  Transmission Date: 20080703
  Serious: Yes (Hospitalization)
  Sender: FDA-Public Use
  Company Number: FR-BRISTOL-MYERS SQUIBB COMPANY-14100556

PATIENT
  Age: 45 Year
  Sex: Female

DRUGS (4)
  1. REYATAZ [Suspect]
     Indication: HIV INFECTION
     Dates: start: 20051201
  2. VIDEX [Concomitant]
  3. NORVIR [Concomitant]
  4. VIREAD [Concomitant]

REACTIONS (3)
  - CHOLECYSTITIS [None]
  - HEPATIC CIRRHOSIS [None]
  - JAUNDICE [None]
